FAERS Safety Report 19274139 (Version 1)
Quarter: 2021Q2

REPORT INFORMATION
  Report Type: Report from Study
  Country: None (occurrence: FR)
  Receive Date: 20210519
  Receipt Date: 20210519
  Transmission Date: 20210717
  Serious: Yes (Hospitalization)
  Sender: FDA-Public Use
  Company Number: FR-ABBVIE-21K-056-3909120-00

PATIENT
  Age: 73 Year
  Sex: Male

DRUGS (2)
  1. DUODOPA [Suspect]
     Active Substance: CARBIDOPA\LEVODOPA
  2. DUODOPA [Suspect]
     Active Substance: CARBIDOPA\LEVODOPA
     Indication: PARKINSON^S DISEASE
     Route: 065
     Dates: start: 201905, end: 202105

REACTIONS (6)
  - Feeding disorder [Unknown]
  - Intentional device use issue [Unknown]
  - Hypersexuality [Unknown]
  - Gait disturbance [Unknown]
  - Weight decreased [Unknown]
  - Intentional medical device removal by patient [Unknown]
